FAERS Safety Report 20946845 (Version 1)
Quarter: 2022Q2

REPORT INFORMATION
  Report Type: Spontaneous
  Country: CN (occurrence: CN)
  Receive Date: 20220610
  Receipt Date: 20220610
  Transmission Date: 20220721
  Serious: Yes (Other)
  Sender: FDA-Public Use
  Company Number: None

PATIENT
  Age: 56 Year
  Sex: Female
  Weight: 46.6 kg

DRUGS (8)
  1. CYCLOPHOSPHAMIDE [Suspect]
     Active Substance: CYCLOPHOSPHAMIDE
     Indication: Breast neoplasm
     Dosage: 850 MG, QD, (DOSAGE FORM: INJECTION), 0.9% SODIUM CHLORIDE 250 ML + CYCLOPHOSPHAMIDE 850 MG
     Route: 042
     Dates: start: 20220429, end: 20220429
  2. CYCLOPHOSPHAMIDE [Suspect]
     Active Substance: CYCLOPHOSPHAMIDE
     Dosage: UNK, QD, DOSE REINTRODUCED, CYCLPHOSPHAMIDE + SODIUM CHLORIDE
     Route: 042
  3. SODIUM CHLORIDE [Suspect]
     Active Substance: SODIUM CHLORIDE
     Indication: Medication dilution
     Dosage: 250 ML, QD, (DOSAGE FORM: INJECTION), 0.9% SODIUM CHLORIDE 250 ML + CYCLOPHOSPHAMIDE 850 MG
     Route: 042
     Dates: start: 20220429, end: 20220429
  4. SODIUM CHLORIDE [Suspect]
     Active Substance: SODIUM CHLORIDE
     Dosage: UNK, QD, DOSE REINTRODUCED, CYCLOPHOSPHAMIDE + SODIUM CHLORIDE
     Route: 042
  5. ANHYDROUS DEXTROSE [Suspect]
     Active Substance: ANHYDROUS DEXTROSE
     Indication: Medication dilution
     Dosage: 500 ML, QD, (DOSAGE FORM: INJECTION), GLUCOSE 500 ML + PIRARUBICIN HYDROCHLORIDE 70 MG
     Route: 042
     Dates: start: 20220429, end: 20220429
  6. ANHYDROUS DEXTROSE [Suspect]
     Active Substance: ANHYDROUS DEXTROSE
     Dosage: UNK, QD, DOSE REINTRODUCED, PIRARUBICIN HYDROCHLORIDE + GLUCOSE
     Route: 042
  7. PIRARUBICIN HYDROCHLORIDE [Suspect]
     Active Substance: PIRARUBICIN HYDROCHLORIDE
     Indication: Breast neoplasm
     Dosage: 70 MG, QD, GLUCOSE 500 ML + PIRARUBICIN HYDROCHLORIDE 70 MG
     Route: 042
     Dates: start: 20220429, end: 20220429
  8. PIRARUBICIN HYDROCHLORIDE [Suspect]
     Active Substance: PIRARUBICIN HYDROCHLORIDE
     Dosage: UNK, QD, DOSE REINTRODUCED, GLUCOSE + PIRARUBICIN HYDROCHLORIDE
     Route: 042

REACTIONS (1)
  - Myelosuppression [Recovering/Resolving]

NARRATIVE: CASE EVENT DATE: 20220509
